FAERS Safety Report 11095441 (Version 4)
Quarter: 2015Q2

REPORT INFORMATION
  Report Type: Report from Study
  Country: US (occurrence: US)
  Receive Date: 20150506
  Receipt Date: 20150528
  Transmission Date: 20150821
  Serious: Yes (Death, Hospitalization)
  Sender: FDA-Public Use
  Company Number: US-ACTELION-A-US2015-116937

PATIENT
  Age: 45 Year
  Sex: Female

DRUGS (3)
  1. VELETRI [Suspect]
     Active Substance: EPOPROSTENOL
     Indication: PULMONARY ARTERIAL HYPERTENSION
     Dosage: 7 NG/KG PER MIN
     Route: 042
     Dates: start: 20150315
  2. ADCIRCA [Concomitant]
     Active Substance: TADALAFIL
     Dosage: 40 MG, UNK
     Dates: start: 2013
  3. VELETRI [Suspect]
     Active Substance: EPOPROSTENOL
     Dosage: 5 NG/KG, PER MIN
     Route: 042
     Dates: start: 20150331

REACTIONS (15)
  - Muscle spasms [Unknown]
  - Blood creatinine increased [Unknown]
  - Asthenia [Unknown]
  - Decreased appetite [Unknown]
  - Somnolence [Unknown]
  - Death [Fatal]
  - Catheter site haemorrhage [Unknown]
  - Acute kidney injury [Unknown]
  - Pain in jaw [Unknown]
  - Dialysis [Unknown]
  - Vomiting [Unknown]
  - Dialysis related complication [Unknown]
  - Hepatorenal syndrome [Unknown]
  - Device issue [Unknown]
  - Confusional state [Unknown]

NARRATIVE: CASE EVENT DATE: 20150428
